FAERS Safety Report 19161690 (Version 1)
Quarter: 2021Q2

REPORT INFORMATION
  Report Type: Spontaneous
  Country: US (occurrence: US)
  Receive Date: 20210420
  Receipt Date: 20210420
  Transmission Date: 20210717
  Serious: No
  Sender: FDA-Public Use
  Company Number: None

PATIENT
  Age: 82 Year
  Sex: Male

DRUGS (1)
  1. TAMSULOSIN (TAMSULOSIN HCL 0.4 MG CAP) [Suspect]
     Active Substance: TAMSULOSIN HYDROCHLORIDE
     Indication: PROSTATIC SPECIFIC ANTIGEN INCREASED
     Dosage: MG AT BED TIME PO
     Route: 048
     Dates: start: 20201225, end: 20201226

REACTIONS (1)
  - Hypotension [None]

NARRATIVE: CASE EVENT DATE: 20201225
